FAERS Safety Report 23718572 (Version 2)
Quarter: 2024Q2

REPORT INFORMATION
  Report Type: Spontaneous
  Country: IT (occurrence: IT)
  Receive Date: 20240408
  Receipt Date: 20240419
  Transmission Date: 20240716
  Serious: Yes (Other)
  Sender: FDA-Public Use
  Company Number: IT-ELI_LILLY_AND_COMPANY-IT202403011944

PATIENT
  Age: 38 Year
  Sex: Female

DRUGS (2)
  1. PEMETREXED [Suspect]
     Active Substance: PEMETREXED
     Indication: Mesothelioma
     Dosage: 500 MILLIGRAM,  CYCLICAL (3 CYCLES)
     Route: 065
     Dates: start: 202305, end: 202306
  2. CISPLATIN [Concomitant]
     Active Substance: CISPLATIN
     Indication: Mesothelioma
     Dosage: UNK
     Route: 065

REACTIONS (1)
  - Malignant neoplasm progression [Unknown]
